FAERS Safety Report 11728831 (Version 1)
Quarter: 2015Q4

REPORT INFORMATION
  Report Type: Spontaneous
  Country: US (occurrence: US)
  Receive Date: 20151110
  Receipt Date: 20151110
  Transmission Date: 20160304
  Serious: No
  Sender: FDA-Public Use
  Company Number: US-ELI_LILLY_AND_COMPANY-US201112004202

PATIENT
  Sex: Female

DRUGS (1)
  1. FORTEO [Suspect]
     Active Substance: TERIPARATIDE
     Indication: OSTEOPOROSIS
     Dosage: UNK, UNKNOWN
     Dates: start: 20101227, end: 20110422

REACTIONS (4)
  - Headache [Unknown]
  - Fatigue [Unknown]
  - Hypoaesthesia [Unknown]
  - Bone pain [Unknown]

NARRATIVE: CASE EVENT DATE: 20110421
